FAERS Safety Report 11144192 (Version 1)
Quarter: 2015Q2

REPORT INFORMATION
  Report Type: Spontaneous
  Country: US (occurrence: US)
  Receive Date: 20150526
  Receipt Date: 20150526
  Transmission Date: 20150821
  Serious: No
  Sender: FDA-Public Use
  Company Number: US-BIOGENIDEC-2015BI069851

PATIENT
  Age: 69 Year
  Sex: Female

DRUGS (14)
  1. CALCIUM [Concomitant]
     Active Substance: CALCIUM
  2. FOSAMAX [Concomitant]
     Active Substance: ALENDRONATE SODIUM
  3. ASPIRIN. [Concomitant]
     Active Substance: ASPIRIN
  4. MELOXICAM. [Concomitant]
     Active Substance: MELOXICAM
  5. LOVASTATIN. [Concomitant]
     Active Substance: LOVASTATIN
  6. TRAMADOL [Concomitant]
     Active Substance: TRAMADOL
  7. AMLODIPINE BESYLATE. [Concomitant]
     Active Substance: AMLODIPINE BESYLATE
  8. VITAMIN C [Concomitant]
     Active Substance: ASCORBIC ACID
  9. AVONEX [Suspect]
     Active Substance: INTERFERON BETA-1A
     Indication: MULTIPLE SCLEROSIS
     Route: 030
  10. AMPYRA [Concomitant]
     Active Substance: DALFAMPRIDINE
  11. ALENDRONATE SODIUM. [Concomitant]
     Active Substance: ALENDRONATE SODIUM
  12. ALPRAZOLAM. [Concomitant]
     Active Substance: ALPRAZOLAM
  13. BENAZEPRIL HCL [Concomitant]
     Active Substance: BENAZEPRIL HYDROCHLORIDE
  14. OMEPRAZOLE. [Concomitant]
     Active Substance: OMEPRAZOLE

REACTIONS (1)
  - Arthritis [Not Recovered/Not Resolved]
